FAERS Safety Report 26037455 (Version 2)
Quarter: 2025Q4

REPORT INFORMATION
  Report Type: Spontaneous
  Country: EU (occurrence: EU)
  Receive Date: 20251112
  Receipt Date: 20251119
  Transmission Date: 20260117
  Serious: Yes (Death)
  Sender: NOVARTIS
  Company Number: EU-002147023-NVSC2025SI174015

PATIENT
  Age: 46 Year
  Sex: Female

DRUGS (7)
  1. EVEROLIMUS [Suspect]
     Active Substance: EVEROLIMUS
     Indication: Insulinoma
     Dosage: UNK
     Route: 065
  2. DIAZOXIDE [Concomitant]
     Active Substance: DIAZOXIDE
     Indication: Hypoglycaemia
     Dosage: UNK
     Route: 065
  3. DEXAMETHASONE [Concomitant]
     Active Substance: DEXAMETHASONE
     Indication: Hypoglycaemia
     Dosage: UNK
     Route: 065
  4. OCTREOTIDE [Concomitant]
     Active Substance: OCTREOTIDE
     Indication: Hypoglycaemia
     Dosage: UNK
     Route: 065
  5. PASIREOTIDE [Concomitant]
     Active Substance: PASIREOTIDE
     Indication: Hypoglycaemia
     Dosage: UNK
     Route: 065
  6. DEXTROSE [Concomitant]
     Active Substance: DEXTROSE MONOHYDRATE
     Indication: Hypoglycaemia
     Dosage: UNK
     Route: 042
  7. Capecitabine;Temozolomide [Concomitant]
     Indication: Hypoglycaemia
     Dosage: UNK
     Route: 065

REACTIONS (2)
  - Malignant neoplasm progression [Fatal]
  - Insulinoma [Fatal]
